FAERS Safety Report 4444790-0 (Version None)
Quarter: 2004Q3

REPORT INFORMATION
  Report Type: 
  Country: None (occurrence: None)
  Receive Date: 20040909
  Receipt Date: 20040728
  Transmission Date: 20050211
  Serious: Yes (Death, Life-Threatening, Hospitalization)
  Sender: FDA-Public Use
  Company Number: JP-MERCK-0407USA02551

PATIENT
  Age: 92 Year
  Sex: Female

DRUGS (5)
  1. PEPCID [Suspect]
     Indication: GASTRIC ULCER
     Route: 048
     Dates: start: 20021016, end: 20040726
  2. MAGNESIUM OXIDE [Concomitant]
     Indication: CONSTIPATION
     Route: 048
     Dates: start: 19910731, end: 20040726
  3. NITRODERM [Concomitant]
     Indication: ANGINA PECTORIS
     Route: 061
     Dates: start: 19910208, end: 20040726
  4. RHYTHMY [Concomitant]
     Indication: INSOMNIA
     Route: 048
     Dates: start: 19940510, end: 20040726
  5. PURSENNID [Concomitant]
     Indication: CONSTIPATION
     Route: 048
     Dates: start: 19940607, end: 20040726

REACTIONS (8)
  - ANAEMIA [None]
  - DIARRHOEA [None]
  - DISSEMINATED INTRAVASCULAR COAGULATION [None]
  - INFLAMMATION [None]
  - OEDEMA [None]
  - RENAL FAILURE [None]
  - THROMBOCYTOPENIA [None]
  - URINARY TRACT INFECTION [None]
